FAERS Safety Report 7119859-2 (Version None)
Quarter: 2010Q4

REPORT INFORMATION
  Report Type: 
  Country: None (occurrence: None)
  Receive Date: 20101123
  Receipt Date: 20101013
  Transmission Date: 20110411
  Serious: No
  Sender: FDA-Public Use
  Company Number: US-BRISTOL-MYERS SQUIBB COMPANY-15286610

PATIENT
  Age: 49 Year
  Sex: Female
  Weight: 108 kg

DRUGS (6)
  1. ONGLYZA [Suspect]
     Indication: DIABETES MELLITUS
     Dosage: ONGOING
     Route: 048
     Dates: start: 20100913
  2. METFORMIN HCL [Suspect]
     Indication: DIABETES MELLITUS
     Dosage: 1DF: GLIMEPIRIDE(2OF THE 4MG TABLETS QD)
     Route: 048
  3. GLIMEPIRIDE [Concomitant]
     Dosage: 1DF=2 OF THE 4 MG TABLETS
  4. VITAMIN TAB [Concomitant]
  5. CALCIUM + VITAMIN D [Concomitant]
  6. OMEGA 3 FATTY ACID [Concomitant]

REACTIONS (3)
  - ABDOMINAL DISCOMFORT [None]
  - DIABETES MELLITUS INADEQUATE CONTROL [None]
  - HEADACHE [None]
